FAERS Safety Report 5238843-7 (Version None)
Quarter: 2007Q1

REPORT INFORMATION
  Report Type: 
  Country: None (occurrence: None)
  Receive Date: 20070215
  Receipt Date: 20070206
  Transmission Date: 20070707
  Serious: Yes (Hospitalization)
  Sender: FDA-Public Use
  Company Number: SE-PFIZER INC-2007006203

PATIENT
  Sex: Female
  Weight: 58 kg

DRUGS (5)
  1. ZYVOX [Suspect]
     Indication: STAPHYLOCOCCAL INFECTION
     Dates: start: 20060118, end: 20060123
  2. DALACIN [Concomitant]
     Dates: start: 20060118, end: 20060123
  3. KLORHEXIDIN [Concomitant]
  4. IBUPROFEN [Concomitant]
  5. CODEINE PHOSPHATE AND ACETAMINOPHEN [Concomitant]

REACTIONS (2)
  - ABDOMINAL PAIN [None]
  - PANCREATITIS [None]
